FAERS Safety Report 4966120-8 (Version None)
Quarter: 2006Q2

REPORT INFORMATION
  Report Type: 
  Country: None (occurrence: None)
  Receive Date: 20060403
  Receipt Date: 20060328
  Transmission Date: 20061013
  Serious: Yes (Hospitalization, Other)
  Sender: FDA-Public Use
  Company Number: 163-21880-06030917

PATIENT
  Age: 91 Year
  Sex: Male
  Weight: 57.1532 kg

DRUGS (13)
  1. REVLIMID [Suspect]
     Indication: MYELODYSPLASTIC SYNDROME
     Dosage: 10 MG, QD, ORAL
     Route: 048
     Dates: start: 20060214, end: 20060306
  2. STEROID (CORTICOSTEROID NOS) [Suspect]
     Indication: POLYMYALGIA RHEUMATICA
  3. DIGOXIN [Concomitant]
  4. HUMULIN N [Concomitant]
  5. HUMULIN R [Concomitant]
  6. CORDARONE [Concomitant]
  7. PREDNISONE [Concomitant]
  8. COUMADIN [Concomitant]
  9. FISH OIL [Concomitant]
  10. LUTEIN (PROGESTERONE) [Concomitant]
  11. PRESERVISION [Concomitant]
  12. TRAMADOL HCL [Concomitant]
  13. OXYGEN [Concomitant]

REACTIONS (5)
  - ATRIAL FIBRILLATION [None]
  - BENIGN PROSTATIC HYPERPLASIA [None]
  - DIABETES MELLITUS [None]
  - HAEMATOCRIT DECREASED [None]
  - POLYMYALGIA RHEUMATICA [None]
